FAERS Safety Report 8033913-2 (Version None)
Quarter: 2011Q4

REPORT INFORMATION
  Report Type: 
  Country: None (occurrence: None)
  Receive Date: 20111222
  Receipt Date: 20111212
  Transmission Date: 20120403
  Serious: Yes (Hospitalization, Other)
  Sender: FDA-Public Use
  Company Number: 2011MA017563

PATIENT
  Sex: Female

DRUGS (14)
  1. COUMADIN [Concomitant]
  2. AMILORIDE HYDROCHLORIDE [Concomitant]
  3. ASPIRIN [Concomitant]
  4. DILTIAZEM HCL [Concomitant]
  5. LISINOPRIL [Concomitant]
  6. TESSALON [Concomitant]
  7. NEXIUM [Concomitant]
  8. POTASSIUM CHLORIDE [Concomitant]
  9. PROZAC [Concomitant]
  10. DIGOXIN [Suspect]
     Indication: PRODUCT USED FOR UNKNOWN INDICATION
     Dosage: 0.125 MG;QD;PO
     Route: 048
     Dates: start: 20080330, end: 20081219
  11. FUROSEMIDE [Concomitant]
  12. METOPROLOL TARTRATE [Concomitant]
  13. SPIRONOLACTONE [Concomitant]
  14. THYROID TAB [Concomitant]

REACTIONS (20)
  - GASTROINTESTINAL DISORDER [None]
  - CHEST PAIN [None]
  - CEREBROVASCULAR ACCIDENT [None]
  - ATRIAL FIBRILLATION [None]
  - HYPERTENSION [None]
  - ANGINA PECTORIS [None]
  - FALL [None]
  - VIITH NERVE PARALYSIS [None]
  - HAEMORRHAGIC STROKE [None]
  - HEART RATE IRREGULAR [None]
  - HYPOTHYROIDISM [None]
  - CARDIAC FAILURE [None]
  - VASCULAR DEMENTIA [None]
  - RHABDOMYOLYSIS [None]
  - EMBOLIC STROKE [None]
  - FLUID RETENTION [None]
  - INFLUENZA LIKE ILLNESS [None]
  - URINARY TRACT INFECTION [None]
  - SPEECH DISORDER [None]
  - QRS AXIS ABNORMAL [None]
